FAERS Safety Report 8104418 (Version 2)
Quarter: 2012Q4

REPORT INFORMATION
  Report Type: 
  Country: DE (occurrence: DE)
  Receive Date: 20110824
  Receipt Date: 20121115
  Transmission Date: 20130627
  Serious: Yes (Death, Hospitalization)
  Sender: FDA-Public Use
  Company Number: DE-GLAXOSMITHKLINE-D0072463A

PATIENT
  Age: 74 None
  Sex: Male

DRUGS (3)
  1. AVANDIA [Suspect]
     Indication: TYPE 2 DIABETES MELLITUS
     Dosage: 4MG Per day
     Route: 065
     Dates: start: 20040715, end: 20100916
  2. DIALYSIS [Concomitant]
     Route: 065
     Dates: start: 20100409
  3. NEUROLEPTIC [Concomitant]
     Route: 065

REACTIONS (12)
  - Cardiac death [Fatal]
  - Cerebrovascular accident [Fatal]
  - Atrial fibrillation [Fatal]
  - Myocardial infarction [Unknown]
  - Coronary artery disease [Unknown]
  - Atrial fibrillation [Unknown]
  - Left ventricular failure [Unknown]
  - Hypotension [Unknown]
  - Pulmonary hypertension [Unknown]
  - Pulmonary congestion [Unknown]
  - Dyspnoea [Unknown]
  - Chest discomfort [Unknown]
